FAERS Safety Report 6326027-0 (Version None)
Quarter: 2009Q3

REPORT INFORMATION
  Report Type: 
  Country: None (occurrence: None)
  Receive Date: 20090820
  Receipt Date: 20090805
  Transmission Date: 20100115
  Serious: Yes (Death, Other)
  Sender: FDA-Public Use
  Company Number: DSJ-2009-09566

PATIENT
  Age: 77 Year
  Sex: Male
  Weight: 75 kg

DRUGS (10)
  1. OLMETEC (OLMESARTAN MEDOXOMIL) (TABLET) (OLMESARTAN MEDOXOMIL) [Suspect]
     Indication: ESSENTIAL HYPERTENSION
     Dosage: 10 MG (10 MG, 1 IN 1 D),PER ORAL
     Route: 048
     Dates: start: 20070119, end: 20090404
  2. VERAPAMIL HYDROCHLORIDE [Concomitant]
  3. ASPIRIN [Concomitant]
  4. BASEN (VOGLIBOSE) (VOGLIBOSE) [Concomitant]
  5. WARFARIN SODIUM [Concomitant]
  6. PRONON (PROPAFENONE HYDROCHLORIDE)(PROPAFENONE HYDROCHLORIDE) [Concomitant]
  7. CIBENOL (CIBENZOLINE SUCCINATE)(CIBENZOLINE SUCCINATE) [Concomitant]
  8. CARVEDILOL [Concomitant]
  9. NORVASC [Concomitant]
  10. DAONIL (GLIBENCLAMIDE) (GLIBENCLAMIDE) [Concomitant]

REACTIONS (4)
  - AMYOTROPHIC LATERAL SCLEROSIS [None]
  - DYSPHAGIA [None]
  - DYSPHONIA [None]
  - INTENTIONAL SELF-INJURY [None]
